FAERS Safety Report 9839752 (Version 1)
Quarter: 2014Q1

REPORT INFORMATION
  Report Type: Spontaneous
  Country: US (occurrence: US)
  Receive Date: 20140124
  Receipt Date: 20140124
  Transmission Date: 20141002
  Serious: No
  Sender: FDA-Public Use
  Company Number: US-BIOGENIDEC-2014BI005640

PATIENT
  Age: 38 Year
  Sex: Female

DRUGS (2)
  1. TECFIDERA [Suspect]
     Indication: MULTIPLE SCLEROSIS
     Route: 048
     Dates: start: 201305, end: 201311
  2. ASPIRIN [Concomitant]

REACTIONS (5)
  - Formication [Recovered/Resolved]
  - Paraesthesia [Recovered/Resolved]
  - Epistaxis [Unknown]
  - Drug intolerance [Unknown]
  - Flushing [Recovered/Resolved]
